FAERS Safety Report 15286394 (Version 2)
Quarter: 2018Q3

REPORT INFORMATION
  Report Type: Not Available
  Country: US (occurrence: US)
  Receive Date: 20180816
  Receipt Date: 20180828
  Transmission Date: 20181010
  Serious: Yes (Death)
  Sender: FDA-Public Use
  Company Number: US-NEUROCRINE BIOSCIENCES INC.-2018NBI02436

PATIENT
  Sex: Female

DRUGS (36)
  1. DOCUSATE [Concomitant]
     Active Substance: DOCUSATE
  2. OXYCODONE [Concomitant]
     Active Substance: OXYCODONE
  3. DULCOLAX NOS [Concomitant]
     Active Substance: BISACODYL OR DOCUSATE SODIUM
  4. IMODIUM A?D [Concomitant]
     Active Substance: LOPERAMIDE HYDROCHLORIDE
  5. VITAMIN D [Concomitant]
     Active Substance: CHOLECALCIFEROL
  6. DESITIN [Concomitant]
     Active Substance: ZINC OXIDE
  7. DONEPEZIL. [Concomitant]
     Active Substance: DONEPEZIL
  8. IPRATROPIUM BROMIDE. [Concomitant]
     Active Substance: IPRATROPIUM BROMIDE
  9. NEOMYCIN POLYMIXIN [Concomitant]
     Active Substance: NEOMYCIN\POLYMYXIN
  10. TRAZODONE [Concomitant]
     Active Substance: TRAZODONE HYDROCHLORIDE
  11. ARTIFICIAL TEARS [Concomitant]
     Active Substance: GLYCERIN\HYPROMELLOSES\POLYETHYLENE GLYCOL 400
  12. INGREZZA [Suspect]
     Active Substance: VALBENAZINE
     Indication: TARDIVE DYSKINESIA
     Dosage: ALTERNATING WITH 2 CAPSULES DAILY (ALTERNATE EVERY OTHER DAY).
     Route: 048
     Dates: start: 20170818
  13. MELATONIN [Concomitant]
     Active Substance: MELATONIN
  14. MULTIVITAMIN [Concomitant]
     Active Substance: VITAMINS
  15. TEMOVATE E [Concomitant]
     Active Substance: CLOBETASOL PROPIONATE
  16. WELLBUTRIN SR [Concomitant]
     Active Substance: BUPROPION HYDROCHLORIDE
  17. ENSURE [Concomitant]
     Active Substance: AMINO ACIDS\DEXTROSE\ELECTROLYTES NOS\SOYBEAN OIL\VITAMINS
  18. FLAXSEED [Concomitant]
     Active Substance: FLAX SEED
  19. AMMONIUM LACTATE. [Concomitant]
     Active Substance: AMMONIUM LACTATE
  20. COGENTIN [Concomitant]
     Active Substance: BENZTROPINE MESYLATE
  21. DULOXETINE. [Concomitant]
     Active Substance: DULOXETINE
  22. KLONOPIN [Concomitant]
     Active Substance: CLONAZEPAM
  23. TYLENOL [Concomitant]
     Active Substance: ACETAMINOPHEN
  24. VITAMIN E COMPLEX [Concomitant]
  25. VOLTAREN [Concomitant]
     Active Substance: DICLOFENAC SODIUM
  26. LEVOTHYROXINE. [Concomitant]
     Active Substance: LEVOTHYROXINE
  27. LORATADINE. [Concomitant]
     Active Substance: LORATADINE
  28. MILK OF MAGNESIA [Concomitant]
     Active Substance: MAGNESIUM HYDROXIDE
  29. POLYETHYLENE GLYCOL [Concomitant]
     Active Substance: POLYETHYLENE GLYCOLS
  30. PRILOSEC [Concomitant]
     Active Substance: OMEPRAZOLE MAGNESIUM
  31. TROSPIUM CHLORIDE ER [Concomitant]
     Active Substance: TROSPIUM CHLORIDE
  32. PRESERVISION AREDS [Concomitant]
     Active Substance: MINERALS\VITAMINS
  33. PROPRANOLOL [Concomitant]
     Active Substance: PROPRANOLOL HYDROCHLORIDE
  34. BIOTIN [Concomitant]
     Active Substance: BIOTIN
  35. FLUTICASONE. [Concomitant]
     Active Substance: FLUTICASONE
  36. GABAPENTIN. [Concomitant]
     Active Substance: GABAPENTIN

REACTIONS (2)
  - Respiratory failure [Fatal]
  - Off label use [Unknown]
